FAERS Safety Report 11117882 (Version 1)
Quarter: 2015Q2

REPORT INFORMATION
  Report Type: Spontaneous
  Country: US (occurrence: None)
  Receive Date: 20150515
  Receipt Date: 20150515
  Transmission Date: 20150821
  Serious: Yes (Death, Hospitalization)
  Sender: FDA-Public Use
  Company Number: None

PATIENT
  Age: 46 Year
  Sex: Female
  Weight: 110.8 kg

DRUGS (2)
  1. CYTARABINE. [Suspect]
     Active Substance: CYTARABINE
     Dates: end: 20150428
  2. IDARUBICIN [Suspect]
     Active Substance: IDARUBICIN
     Dates: end: 20150424

REACTIONS (2)
  - Unresponsive to stimuli [None]
  - Gastrointestinal necrosis [None]

NARRATIVE: CASE EVENT DATE: 20150509
